FAERS Safety Report 4848257-7 (Version None)
Quarter: 2005Q4

REPORT INFORMATION
  Report Type: 
  Country: None (occurrence: None)
  Receive Date: 20051208
  Receipt Date: 20051129
  Transmission Date: 20060501
  Serious: Yes (Hospitalization)
  Sender: FDA-Public Use
  Company Number: 2005AP06215

PATIENT
  Age: 88 Year
  Sex: Female

DRUGS (13)
  1. CRESTOR [Suspect]
     Indication: HYPERCHOLESTEROLAEMIA
     Route: 048
     Dates: start: 20050926, end: 20051128
  2. LIPITOR [Concomitant]
     Dosage: PAST HISTORY
  3. YODEL S [Concomitant]
     Route: 048
     Dates: start: 20050301
  4. LENDORMIN [Concomitant]
     Route: 048
     Dates: start: 20050301
  5. MUCOSTA [Concomitant]
     Route: 048
     Dates: start: 20050301
  6. MAGNESIUM OXIDE [Concomitant]
     Route: 048
  7. CALCIUM LACTATE [Concomitant]
     Route: 048
  8. OTANOL [Concomitant]
     Route: 048
  9. MERISLON [Concomitant]
     Route: 048
  10. KETAS [Concomitant]
     Route: 048
  11. FOSAMAC [Concomitant]
     Route: 048
  12. SELTOUCH [Concomitant]
  13. ELCITONIN [Concomitant]
     Route: 030

REACTIONS (7)
  - ALANINE AMINOTRANSFERASE INCREASED [None]
  - ASPARTATE AMINOTRANSFERASE INCREASED [None]
  - BLOOD BILIRUBIN INCREASED [None]
  - HEPATIC FUNCTION ABNORMAL [None]
  - MALAISE [None]
  - NAUSEA [None]
  - WHITE BLOOD CELL COUNT DECREASED [None]
